FAERS Safety Report 5818266-X (Version None)
Quarter: 2008Q3

REPORT INFORMATION
  Report Type: 
  Country: None (occurrence: None)
  Receive Date: 20080716
  Receipt Date: 20080630
  Transmission Date: 20090109
  Serious: Yes (Death, Other)
  Sender: FDA-Public Use
  Company Number: 2007EU000431

PATIENT
  Age: 64 Year
  Sex: Female

DRUGS (2)
  1. PROGRAF [Suspect]
     Indication: UVEITIS
     Dosage: 1 MG, BID, ORAL
     Route: 048
     Dates: start: 20011016, end: 20020417
  2. PREDNISONE [Concomitant]

REACTIONS (1)
  - METASTASES TO LIVER [None]
